FAERS Safety Report 22029847 (Version 6)
Quarter: 2023Q2

REPORT INFORMATION
  Report Type: Spontaneous
  Country: US (occurrence: US)
  Receive Date: 20230223
  Receipt Date: 20230424
  Transmission Date: 20230722
  Serious: No
  Sender: FDA-Public Use
  Company Number: US-PFIZER INC-PV202300031414

PATIENT
  Age: 9 Year
  Sex: Female
  Weight: 34.014 kg

DRUGS (3)
  1. GENOTROPIN [Suspect]
     Active Substance: SOMATROPIN
     Indication: Growth hormone deficiency
     Dosage: 1.2 MG
  2. GENOTROPIN [Suspect]
     Active Substance: SOMATROPIN
     Dosage: 0.7 MG
     Dates: start: 20230215
  3. GENOTROPIN [Suspect]
     Active Substance: SOMATROPIN
     Dosage: 12 ML, 1X/DAY

REACTIONS (4)
  - Intentional device misuse [Unknown]
  - Incorrect dose administered [Unknown]
  - Injection site pain [Unknown]
  - Product label issue [Unknown]

NARRATIVE: CASE EVENT DATE: 20230215
